FAERS Safety Report 20038370 (Version 1)
Quarter: 2021Q4

REPORT INFORMATION
  Report Type: Spontaneous
  Country: US (occurrence: None)
  Receive Date: 20211105
  Receipt Date: 20211105
  Transmission Date: 20220303
  Serious: Yes (Death)
  Sender: FDA-Public Use
  Company Number: 2021A793963

PATIENT
  Age: 85 Year

DRUGS (5)
  1. BEVESPI AEROSPHERE [Suspect]
     Active Substance: FORMOTEROL FUMARATE\GLYCOPYRROLATE
     Dosage: 9
     Route: 055
     Dates: start: 20200701
  2. TRELEGY ELLIPTA [Suspect]
     Active Substance: FLUTICASONE FUROATE\UMECLIDINIUM BROMIDE\VILANTEROL TRIFENATATE
     Dosage: 200
     Route: 055
     Dates: start: 20200220
  3. COMBIVENT [Suspect]
     Active Substance: ALBUTEROL SULFATE\IPRATROPIUM BROMIDE
     Dosage: 20
     Route: 055
     Dates: start: 20200501
  4. UNSPECIFIED INGREDIENT [Suspect]
     Active Substance: UNSPECIFIED INGREDIENT
     Dosage: 20 UNKNOWN
     Route: 055
     Dates: start: 20200601
  5. ELIQUIS [Suspect]
     Active Substance: APIXABAN
     Dosage: 2.4MG UNKNOWN
     Route: 048
     Dates: start: 20200101

REACTIONS (1)
  - Death [Fatal]

NARRATIVE: CASE EVENT DATE: 20210915
